FAERS Safety Report 4449479-X (Version None)
Quarter: 2004Q3

REPORT INFORMATION
  Report Type: 
  Country: None (occurrence: None)
  Receive Date: 20040913
  Receipt Date: 20040826
  Transmission Date: 20050211
  Serious: Yes (Hospitalization)
  Sender: FDA-Public Use
  Company Number: DSA_24953_2004

PATIENT
  Age: 28 Year
  Sex: Female

DRUGS (4)
  1. TEMESTA [Suspect]
     Dates: start: 20040728, end: 20040728
  2. ALCOHOL [Suspect]
  3. ENTUMIN [Suspect]
     Dosage: 1.2 G ONCE PO
     Route: 048
     Dates: start: 20040728, end: 20040728
  4. TRANXENE [Suspect]
     Dates: start: 20040728, end: 20040728

REACTIONS (8)
  - AGITATION [None]
  - ALCOHOL USE [None]
  - COMA [None]
  - MIOSIS [None]
  - MULTIPLE DRUG OVERDOSE [None]
  - SELF-INJURIOUS IDEATION [None]
  - SOPOR [None]
  - SUICIDE ATTEMPT [None]
